FAERS Safety Report 4299707-9 (Version None)
Quarter: 2004Q1

REPORT INFORMATION
  Report Type: 
  Country: None (occurrence: None)
  Receive Date: 20040126
  Receipt Date: 20031114
  Transmission Date: 20041129
  Serious: No
  Sender: FDA-Public Use
  Company Number: USA031152239

PATIENT
  Age: 8 Year
  Sex: Female
  Weight: 29 kg

DRUGS (2)
  1. STRATTERA [Suspect]
     Indication: ATTENTION DEFICIT/HYPERACTIVITY DISORDER
     Dosage: 25 MG/DAY
     Dates: start: 20030901, end: 20031111
  2. RISPERDAL [Concomitant]

REACTIONS (5)
  - ABDOMINAL PAIN UPPER [None]
  - CONSTIPATION [None]
  - DYSPHAGIA [None]
  - HEADACHE [None]
  - HEART RATE INCREASED [None]
